FAERS Safety Report 4643649-3 (Version None)
Quarter: 2005Q2

REPORT INFORMATION
  Report Type: 
  Country: None (occurrence: None)
  Receive Date: 20050425
  Receipt Date: 20041018
  Transmission Date: 20051028
  Serious: No
  Sender: FDA-Public Use
  Company Number: US-BRISTOL-MYERS SQUIBB COMPANY-12740916

PATIENT
  Age: 52 Year
  Sex: Female

DRUGS (4)
  1. PARAPLATIN AQ [Suspect]
     Indication: BREAST CANCER METASTATIC
     Route: 042
     Dates: start: 20040406, end: 20040406
  2. DECADRON [Concomitant]
  3. KYTRIL [Concomitant]
  4. TAXOTERE [Concomitant]

REACTIONS (5)
  - DYSPNOEA [None]
  - FEELING HOT [None]
  - FLUSHING [None]
  - PARAESTHESIA [None]
  - URTICARIA [None]
